FAERS Safety Report 6010147-4 (Version None)
Quarter: 2008Q4

REPORT INFORMATION
  Report Type: 
  Country: None (occurrence: None)
  Receive Date: 20081217
  Receipt Date: 20081217
  Transmission Date: 20090506
  Serious: Yes (Other)
  Sender: FDA-Public Use
  Company Number: None

PATIENT
  Age: 64 Year
  Sex: Female
  Weight: 84.8226 kg

DRUGS (1)
  1. PAROXETINE HYDROCHLORIDE [Suspect]
     Indication: MAJOR DEPRESSION
     Dosage: 25MG PO
     Route: 048
     Dates: start: 20080307, end: 20080708

REACTIONS (3)
  - FORMICATION [None]
  - PARAESTHESIA [None]
  - PRODUCT QUALITY ISSUE [None]
